FAERS Safety Report 9102712 (Version 1)
Quarter: 2013Q1

REPORT INFORMATION
  Report Type: Spontaneous
  Country: NZ (occurrence: NZ)
  Receive Date: 20130218
  Receipt Date: 20130218
  Transmission Date: 20140127
  Serious: Yes (Other)
  Sender: FDA-Public Use
  Company Number: NZ-ELI_LILLY_AND_COMPANY-NZ201302002041

PATIENT
  Age: 75 Year
  Sex: Female

DRUGS (5)
  1. OLANZAPINE [Suspect]
     Indication: PSYCHOTIC DISORDER
     Dosage: 1 DF, QD
     Route: 048
     Dates: start: 20120823, end: 20120902
  2. FELODIPINE [Concomitant]
     Dosage: 2.5 MG, QD
     Route: 048
  3. METOPROLOL [Concomitant]
     Dosage: 1 DF, QD
     Route: 048
  4. HEPARIN [Concomitant]
     Dosage: 40 MG, QD
     Route: 058
     Dates: start: 20120817, end: 20120904
  5. CEFAZOLIN [Concomitant]
     Dosage: 3 G, QD
     Route: 042
     Dates: start: 20120808, end: 20120904

REACTIONS (1)
  - Neutropenia [Recovered/Resolved]
